FAERS Safety Report 8140922-1 (Version None)
Quarter: 2012Q1

REPORT INFORMATION
  Report Type: 
  Country: None (occurrence: None)
  Receive Date: 20120216
  Receipt Date: 20120210
  Transmission Date: 20120608
  Serious: Yes (Other)
  Sender: FDA-Public Use
  Company Number: US-BAYER-2011-061177

PATIENT
  Age: 26 Year
  Sex: Female
  Weight: 93 kg

DRUGS (11)
  1. YAZ [Suspect]
     Indication: PREMENSTRUAL SYNDROME
  2. YASMIN [Suspect]
     Indication: PREMENSTRUAL SYNDROME
  3. YASMIN [Suspect]
     Indication: ACNE
     Dosage: UNK
     Dates: start: 20070101, end: 20090101
  4. DROSPIRENONE AND ETHINYL ESTRADIOL [Suspect]
     Indication: ACNE
     Dosage: UNK
     Dates: start: 20070101, end: 20090101
  5. IMITREX [Concomitant]
     Dosage: 100 MG, AS NEEDED
  6. DROSPIRENONE AND ETHINYL ESTRADIOL [Suspect]
     Indication: PREMENSTRUAL SYNDROME
  7. LEXAPRO [Concomitant]
     Dosage: 20 MG, DAILY
     Route: 048
  8. YAZ [Suspect]
     Indication: ACNE
     Dosage: UNK
     Dates: start: 20070101, end: 20090101
  9. IBUPROFEN [Concomitant]
     Dosage: 800 MG, AS NEEDED
     Route: 048
     Dates: start: 20090818
  10. TRI-LO [Concomitant]
  11. TOPIRAMATE [Concomitant]
     Dosage: 50 MG, DAILY X1 WEEK THEN 2X DAY
     Route: 048
     Dates: start: 20090818

REACTIONS (6)
  - INJURY [None]
  - GALLBLADDER DISORDER [None]
  - PULMONARY EMBOLISM [None]
  - PAIN [None]
  - CHOLECYSTITIS [None]
  - DEEP VEIN THROMBOSIS [None]
